FAERS Safety Report 10979783 (Version 5)
Quarter: 2016Q4

REPORT INFORMATION
  Report Type: Report from Study
  Country: US (occurrence: US)
  Receive Date: 20150402
  Receipt Date: 20161228
  Transmission Date: 20170206
  Serious: Yes (Hospitalization)
  Sender: FDA-Public Use
  Company Number: US-ACTELION-A-NJ2015-114961

PATIENT
  Age: 49 Year
  Sex: Female

DRUGS (4)
  1. VELETRI [Suspect]
     Active Substance: EPOPROSTENOL
     Indication: PULMONARY ARTERIAL HYPERTENSION
     Dosage: 60 NG/KG, PER MIN
     Route: 042
     Dates: start: 20110504
  2. RIOCIGUAT [Concomitant]
     Active Substance: RIOCIGUAT
  3. TRACLEER [Suspect]
     Active Substance: BOSENTAN
     Indication: PULMONARY ARTERIAL HYPERTENSION
     Dosage: 125 MG, BID
     Route: 048
     Dates: start: 20120228
  4. COUMADIN [Concomitant]
     Active Substance: WARFARIN SODIUM

REACTIONS (10)
  - Pneumonia [Unknown]
  - Rales [Unknown]
  - Pulse pressure increased [Unknown]
  - Pain in extremity [Unknown]
  - Clostridium difficile infection [Unknown]
  - Fatigue [Unknown]
  - Pyrexia [Unknown]
  - Pain in jaw [Unknown]
  - Dyspnoea [Unknown]
  - Hypotension [Unknown]
